FAERS Safety Report 8482789 (Version 7)
Quarter: 2012Q4

REPORT INFORMATION
  Report Type: 
  Country: US (occurrence: US)
  Receive Date: 20120329
  Receipt Date: 20120918
  Transmission Date: 20130627
  Serious: Yes (Hospitalization, Disabling, Other)
  Sender: FDA-Public Use
  Company Number: US-009507513-1203USA03369

PATIENT

DRUGS (12)
  1. FOSAMAX [Suspect]
     Indication: OSTEOPENIA
     Dosage: 70 mg, QW
     Route: 048
     Dates: start: 20020702, end: 20080125
  2. FOSAMAX [Suspect]
     Indication: SCOLIOSIS
  3. FOSAMAX [Suspect]
     Indication: OSTEOPOROSIS
     Dosage: UNK
     Route: 048
     Dates: start: 20100303
  4. FOSAMAX [Suspect]
     Indication: OSTEOPENIA
  5. ALENDRONATE SODIUM [Suspect]
     Indication: OSTEOPOROSIS
     Dosage: 70 mg, QW
     Route: 048
     Dates: start: 20080218, end: 20100602
  6. ALENDRONATE SODIUM [Suspect]
     Indication: OSTEOPENIA
  7. BONIVA [Suspect]
     Indication: OSTEOPENIA
     Dosage: 150 mg, UNK
     Route: 048
     Dates: start: 20100614, end: 20110630
  8. BONIVA [Suspect]
     Indication: SCOLIOSIS
  9. MK-9278 [Concomitant]
     Indication: PRODUCT USED FOR UNKNOWN INDICATION
     Dosage: UNK
  10. PRILOSEC [Concomitant]
     Indication: PRODUCT USED FOR UNKNOWN INDICATION
     Dosage: UNK
     Dates: start: 2002
  11. HORMONES (UNSPECIFIED) [Concomitant]
     Indication: PRODUCT USED FOR UNKNOWN INDICATION
     Dates: start: 1999, end: 200709
  12. CALCIUM (UNSPECIFIED) [Concomitant]
     Indication: PRODUCT USED FOR UNKNOWN INDICATION

REACTIONS (43)
  - Femur fracture [Not Recovered/Not Resolved]
  - Femur fracture [Recovered/Resolved]
  - Osteoporosis [Not Recovered/Not Resolved]
  - Stress fracture [Not Recovered/Not Resolved]
  - Low turnover osteopathy [Not Recovered/Not Resolved]
  - Impaired healing [Unknown]
  - Deep vein thrombosis [Unknown]
  - Plantar fasciitis [Unknown]
  - Off label use [Unknown]
  - Irritable bowel syndrome [Unknown]
  - Lip dry [Unknown]
  - Hypertension [Unknown]
  - Hypercholesterolaemia [Unknown]
  - Gastrooesophageal reflux disease [Unknown]
  - Uterine disorder [Unknown]
  - Benign breast neoplasm [Unknown]
  - Dizziness [Unknown]
  - Atrial fibrillation [Unknown]
  - Urinary tract infection [Recovered/Resolved]
  - International normalised ratio increased [Unknown]
  - Fatigue [Unknown]
  - Goitre [Unknown]
  - Venous insufficiency [Unknown]
  - Exostosis [Unknown]
  - Productive cough [Unknown]
  - Joint swelling [Unknown]
  - Paraesthesia [Unknown]
  - Limb discomfort [Unknown]
  - Joint effusion [Unknown]
  - Muscle spasms [Unknown]
  - Facial pain [Unknown]
  - Toothache [Unknown]
  - Nasal congestion [Unknown]
  - Nasopharyngitis [Unknown]
  - Sinusitis [Unknown]
  - Hiatus hernia [Unknown]
  - Drug hypersensitivity [Unknown]
  - Drug ineffective [Unknown]
  - Fibrocystic breast disease [Unknown]
  - Tonsillar disorder [Unknown]
  - Adenoidal disorder [Unknown]
  - Tinnitus [Unknown]
  - Kyphosis [Unknown]
